FAERS Safety Report 7530644-X (Version None)
Quarter: 2011Q2

REPORT INFORMATION
  Report Type: 
  Country: None (occurrence: None)
  Receive Date: 20110607
  Receipt Date: 20060905
  Transmission Date: 20111010
  Serious: Yes (Other)
  Sender: FDA-Public Use
  Company Number: CA-GENENTECH-319893

PATIENT
  Sex: Male
  Weight: 65 kg

DRUGS (3)
  1. XOLAIR [Suspect]
     Indication: PRODUCT USED FOR UNKNOWN INDICATION
     Dosage: 300 MG, UNK
     Route: 058
     Dates: start: 20060406
  2. TYLENOL-500 [Concomitant]
     Indication: OROPHARYNGEAL PAIN
  3. PREDNISONE [Concomitant]
     Indication: DYSPNOEA

REACTIONS (3)
  - DYSPNOEA [None]
  - HAEMOPTYSIS [None]
  - OROPHARYNGEAL PAIN [None]
